FAERS Safety Report 18903489 (Version 1)
Quarter: 2021Q1

REPORT INFORMATION
  Report Type: Report from Study
  Country: US (occurrence: US)
  Receive Date: 20210216
  Receipt Date: 20210216
  Transmission Date: 20210420
  Serious: Yes (Hospitalization, Other)
  Sender: FDA-Public Use
  Company Number: US-BRISTOL-MYERS SQUIBB COMPANY-BMS-2021-013667

PATIENT
  Sex: Male
  Weight: 99.79 kg

DRUGS (1)
  1. ABATACEPT [Suspect]
     Active Substance: ABATACEPT
     Indication: RHEUMATOID ARTHRITIS
     Dosage: 1000 MILLIGRAM, Q4WK
     Route: 042
     Dates: end: 202010

REACTIONS (7)
  - Therapeutic product effect incomplete [Unknown]
  - Prescribed overdose [Unknown]
  - Feeling cold [Recovering/Resolving]
  - Tremor [Recovering/Resolving]
  - Sarcoidosis [Unknown]
  - Spinal stenosis [Unknown]
  - Localised infection [Unknown]
